FAERS Safety Report 9836570 (Version 7)
Quarter: 2014Q3

REPORT INFORMATION
  Report Type: Spontaneous
  Country: JP (occurrence: JP)
  Receive Date: 20140123
  Receipt Date: 20140707
  Transmission Date: 20150326
  Serious: Yes (Life-Threatening, Hospitalization, Disabling, Other)
  Sender: FDA-Public Use
  Company Number: JP-ASTRAZENECA-2014SE04794

PATIENT
  Age: 76 Year
  Sex: Female
  Weight: 60 kg

DRUGS (36)
  1. PROMAC [Concomitant]
     Active Substance: NITROFURANTOIN
     Indication: ZINC DEFICIENCY
     Route: 048
  2. AZILVA [Concomitant]
     Active Substance: AZILSARTAN KAMEDOXOMIL
     Indication: HYPERTENSION
     Route: 048
     Dates: start: 20131228, end: 20140114
  3. ALLELOCK [Concomitant]
     Active Substance: OLOPATADINE HYDROCHLORIDE
     Indication: RASH
     Route: 048
     Dates: start: 20140106, end: 20140109
  4. CUBICIN [Suspect]
     Active Substance: DAPTOMYCIN
     Indication: SUBCUTANEOUS ABSCESS
     Dosage: 10 MG/KG, DIVIDED DOSE FREQUENCY IS UNCERTAIN
     Route: 041
     Dates: start: 20140112, end: 20140115
  5. CUBICIN [Suspect]
     Active Substance: DAPTOMYCIN
     Indication: SUBCUTANEOUS ABSCESS
     Route: 041
  6. ROZEREM [Concomitant]
     Active Substance: RAMELTEON
     Indication: INSOMNIA
     Route: 048
     Dates: start: 20140107, end: 20140113
  7. CUBICIN [Suspect]
     Active Substance: DAPTOMYCIN
     Indication: ENDOCARDITIS
     Dosage: 6 MG/KG, DIVIDED DOSE FREQUENCY IS UNCERTAIN
     Route: 041
     Dates: start: 20131225, end: 20140101
  8. CUBICIN [Suspect]
     Active Substance: DAPTOMYCIN
     Indication: ENDOCARDITIS
     Route: 041
  9. PROMAC [Concomitant]
     Active Substance: NITROFURANTOIN
     Indication: ZINC DEFICIENCY
     Route: 048
     Dates: start: 20131224, end: 20140114
  10. NORVASC [Concomitant]
     Active Substance: AMLODIPINE BESYLATE
     Indication: HYPERTENSION
     Route: 048
     Dates: start: 20140107, end: 20140114
  11. MUCOSTA [Concomitant]
     Active Substance: REBAMIPIDE
     Indication: GASTRIC ULCER
     Route: 048
     Dates: start: 20131231, end: 20140108
  12. CUBICIN [Suspect]
     Active Substance: DAPTOMYCIN
     Indication: STAPHYLOCOCCAL INFECTION
     Dosage: 6 MG/KG, DIVIDED DOSE FREQUENCY IS UNCERTAIN
     Route: 041
     Dates: start: 20131225, end: 20140101
  13. CUBICIN [Suspect]
     Active Substance: DAPTOMYCIN
     Indication: STAPHYLOCOCCAL INFECTION
     Dosage: 10 MG/KG, DIVIDED DOSE FREQUENCY IS UNCERTAIN
     Route: 041
     Dates: start: 20140112, end: 20140115
  14. CUBICIN [Suspect]
     Active Substance: DAPTOMYCIN
     Indication: PELVIC ABSCESS
     Route: 041
  15. ALBUMINAR [Concomitant]
     Active Substance: ALBUMIN (HUMAN)
     Indication: HYPOALBUMINAEMIA
     Route: 041
     Dates: start: 20140103, end: 20140103
  16. ALBUMINAR [Concomitant]
     Active Substance: ALBUMIN (HUMAN)
     Indication: HYPOALBUMINAEMIA
     Route: 041
     Dates: start: 20140108, end: 20140108
  17. CEFAMEZIN [Concomitant]
     Active Substance: CEFAZOLIN
     Indication: URINARY TRACT INFECTION
     Route: 041
     Dates: start: 20140107, end: 20140111
  18. XYLOCAINE [Concomitant]
     Active Substance: LIDOCAINE HYDROCHLORIDE
     Indication: LOCAL ANAESTHESIA
     Dosage: 100 MG TWO TIMES DAILY
     Route: 065
     Dates: start: 20140103, end: 20140103
  19. CUBICIN [Suspect]
     Active Substance: DAPTOMYCIN
     Indication: PELVIC ABSCESS
     Dosage: 6 MG/KG, DIVIDED DOSE FREQUENCY IS UNCERTAIN
     Route: 041
     Dates: start: 20131225, end: 20140101
  20. CUBICIN [Suspect]
     Active Substance: DAPTOMYCIN
     Indication: PELVIC ABSCESS
     Dosage: 10 MG/KG, DIVIDED DOSE FREQUENCY IS UNCERTAIN
     Route: 041
     Dates: start: 20140112, end: 20140115
  21. CUBICIN [Suspect]
     Active Substance: DAPTOMYCIN
     Indication: ENDOCARDITIS
     Dosage: 10 MG/KG, DIVIDED DOSE FREQUENCY IS UNCERTAIN
     Route: 041
     Dates: start: 20140112, end: 20140115
  22. ALBUMINAR [Concomitant]
     Active Substance: ALBUMIN (HUMAN)
     Indication: HYPOALBUMINAEMIA
     Route: 041
     Dates: start: 20131224, end: 20131231
  23. CUBICIN [Suspect]
     Active Substance: DAPTOMYCIN
     Indication: STAPHYLOCOCCAL INFECTION
     Dosage: 8 MG/KG, DIVIDED DOSE FREQUENCY IS UNCERTAIN
     Route: 041
     Dates: start: 20140102, end: 20140111
  24. CUBICIN [Suspect]
     Active Substance: DAPTOMYCIN
     Indication: PELVIC ABSCESS
     Dosage: 8 MG/KG, DIVIDED DOSE FREQUENCY IS UNCERTAIN
     Route: 041
     Dates: start: 20140102, end: 20140111
  25. CUBICIN [Suspect]
     Active Substance: DAPTOMYCIN
     Indication: STAPHYLOCOCCAL INFECTION
     Route: 041
  26. KAYTWO N [Concomitant]
     Active Substance: UNSPECIFIED INGREDIENT
     Indication: PROTHROMBIN LEVEL DECREASED
     Route: 041
     Dates: start: 20131231, end: 20140104
  27. NORVASC [Concomitant]
     Active Substance: AMLODIPINE BESYLATE
     Indication: HYPERTENSION
     Route: 048
     Dates: start: 20131227, end: 20140114
  28. CALONAL [Concomitant]
     Active Substance: ACETAMINOPHEN
     Indication: PYREXIA
     Route: 048
     Dates: start: 20131225, end: 20140105
  29. SENNOSIDE [Concomitant]
     Active Substance: SENNOSIDES
     Indication: CONSTIPATION
     Route: 048
     Dates: start: 20131227, end: 20140104
  30. PROMAC [Concomitant]
     Active Substance: NITROFURANTOIN
     Indication: PROPHYLAXIS AGAINST GASTROINTESTINAL ULCER
     Route: 048
  31. MIYA-BM [Concomitant]
     Active Substance: CLOSTRIDIUM BUTYRICUM SPORES STRAIN M-55
     Indication: ENTEROCOLITIS
     Route: 048
     Dates: start: 20131224
  32. CUBICIN [Suspect]
     Active Substance: DAPTOMYCIN
     Indication: SUBCUTANEOUS ABSCESS
     Dosage: 6 MG/KG, DIVIDED DOSE FREQUENCY IS UNCERTAIN
     Route: 041
     Dates: start: 20131225, end: 20140101
  33. CUBICIN [Suspect]
     Active Substance: DAPTOMYCIN
     Indication: ENDOCARDITIS
     Dosage: 8 MG/KG, DIVIDED DOSE FREQUENCY IS UNCERTAIN
     Route: 041
     Dates: start: 20140102, end: 20140111
  34. CUBICIN [Suspect]
     Active Substance: DAPTOMYCIN
     Indication: SUBCUTANEOUS ABSCESS
     Dosage: 8 MG/KG, DIVIDED DOSE FREQUENCY IS UNCERTAIN
     Route: 041
     Dates: start: 20140102, end: 20140111
  35. NEXIUM [Suspect]
     Active Substance: ESOMEPRAZOLE MAGNESIUM
     Indication: GASTRIC ULCER
     Route: 048
     Dates: start: 20131231, end: 20140114
  36. PROMAC [Concomitant]
     Active Substance: NITROFURANTOIN
     Indication: PROPHYLAXIS AGAINST GASTROINTESTINAL ULCER
     Route: 048
     Dates: start: 20131224, end: 20140114

REACTIONS (7)
  - Renal impairment [Not Recovered/Not Resolved]
  - Urinary tract infection [Recovering/Resolving]
  - Abscess [Unknown]
  - Respiratory failure [Recovering/Resolving]
  - Eosinophilic pneumonia [Recovering/Resolving]
  - Rash [Recovering/Resolving]
  - Hepatic function abnormal [Recovering/Resolving]

NARRATIVE: CASE EVENT DATE: 20131226
